FAERS Safety Report 11553780 (Version 1)
Quarter: 2015Q3

REPORT INFORMATION
  Report Type: Spontaneous
  Country: US (occurrence: US)
  Receive Date: 20150903
  Receipt Date: 20150903
  Transmission Date: 20151125
  Serious: No
  Sender: FDA-Public Use
  Company Number: US-ELI_LILLY_AND_COMPANY-US201007005527

PATIENT
  Age: 10 Year
  Sex: Female

DRUGS (4)
  1. HUMALOG [Suspect]
     Active Substance: INSULIN LISPRO
     Dosage: 4 U, OTHER
     Dates: start: 20100721
  2. LANTUS [Concomitant]
     Active Substance: INSULIN GLARGINE
  3. LANTUS [Concomitant]
     Active Substance: INSULIN GLARGINE
     Dosage: 11 U, OTHER
     Dates: start: 20100721
  4. HUMALOG [Suspect]
     Active Substance: INSULIN LISPRO
     Indication: DIABETES MELLITUS
     Dosage: UNK, AS NEEDED

REACTIONS (3)
  - Ingrowing nail [Recovering/Resolving]
  - Blood glucose increased [Not Recovered/Not Resolved]
  - Drug ineffective [Not Recovered/Not Resolved]

NARRATIVE: CASE EVENT DATE: 20100719
